FAERS Safety Report 21999588 (Version 1)
Quarter: 2023Q1

REPORT INFORMATION
  Report Type: Spontaneous
  Country: US (occurrence: US)
  Receive Date: 20230216
  Receipt Date: 20230216
  Transmission Date: 20230418
  Serious: No
  Sender: FDA-Public Use
  Company Number: US-009507513-2302USA000273

PATIENT
  Age: 15 Year
  Sex: Female

DRUGS (6)
  1. NOXAFIL [Suspect]
     Active Substance: POSACONAZOLE
     Indication: Scedosporium infection
     Dosage: UNK
     Route: 048
  2. VORICONAZOLE [Concomitant]
     Active Substance: VORICONAZOLE
     Indication: Scedosporium infection
     Dosage: UNK
  3. SARGRAMOSTIM [Concomitant]
     Active Substance: SARGRAMOSTIM
     Indication: Scedosporium infection
     Dosage: 250 MICROG/ M2/D WHEN ABSOLUTE NEUTROPHIL COUNT (ANC) LESS THAN 500; 100 MICROG/M2/ DOSE 3 TIMES WEE
  4. MICAFUNGIN [Concomitant]
     Active Substance: MICAFUNGIN
     Indication: Scedosporium infection
     Dosage: UNK
  5. AMPHOTERICIN B [Concomitant]
     Active Substance: AMPHOTERICIN B
     Indication: Scedosporium infection
     Dosage: UNK
  6. ISAVUCONAZOLE [Concomitant]
     Active Substance: ISAVUCONAZOLE
     Indication: Scedosporium infection
     Dosage: UNK

REACTIONS (1)
  - Product use in unapproved indication [Unknown]
